FAERS Safety Report 17183745 (Version 1)
Quarter: 2019Q4

REPORT INFORMATION
  Report Type: Report from Study
  Country: FR (occurrence: FR)
  Receive Date: 20191220
  Receipt Date: 20191220
  Transmission Date: 20200122
  Serious: Yes (Hospitalization, Other)
  Sender: FDA-Public Use
  Company Number: FR-PFIZER INC-2019540899

PATIENT
  Age: 4 Year
  Sex: Female
  Weight: 16.3 kg

DRUGS (3)
  1. SOMATROPIN. [Suspect]
     Active Substance: SOMATROPIN
     Indication: FOETAL GROWTH RESTRICTION
     Dosage: 0.6 MG, 1X/DAY
     Route: 058
     Dates: start: 20170927
  2. SOMATROPIN. [Suspect]
     Active Substance: SOMATROPIN
     Indication: SMALL FOR DATES BABY
     Dosage: 0.65 MG, 1X/DAY
     Route: 058
     Dates: start: 20151204, end: 20160901
  3. ZYMAD [Concomitant]
     Active Substance: CHOLECALCIFEROL
     Indication: PROPHYLAXIS
     Dosage: UNK
     Route: 048
     Dates: start: 20170512

REACTIONS (3)
  - Visual acuity reduced [Not Recovered/Not Resolved]
  - Idiopathic intracranial hypertension [Recovered/Resolved]
  - Papilloedema [Recovering/Resolving]

NARRATIVE: CASE EVENT DATE: 20160831
